FAERS Safety Report 7583501-7 (Version None)
Quarter: 2011Q2

REPORT INFORMATION
  Report Type: 
  Country: None (occurrence: None)
  Receive Date: 20110630
  Receipt Date: 20110628
  Transmission Date: 20111010
  Serious: Yes (Hospitalization)
  Sender: FDA-Public Use
  Company Number: A0933400A

PATIENT
  Age: 57 Year
  Sex: Female
  Weight: 85.5 kg

DRUGS (6)
  1. ALLI [Suspect]
     Route: 065
     Dates: start: 20081201, end: 20110401
  2. PRAVASTATIN [Concomitant]
  3. VITAMIN D [Concomitant]
  4. VITAMIN E [Concomitant]
  5. ASCORBIC ACID [Concomitant]
  6. CALCIUM WITH VITAMIN D [Concomitant]

REACTIONS (17)
  - FATIGUE [None]
  - BLOOD URINE PRESENT [None]
  - DYSURIA [None]
  - FEELING ABNORMAL [None]
  - INSOMNIA [None]
  - CYSTITIS [None]
  - CYSTITIS INTERSTITIAL [None]
  - DYSPAREUNIA [None]
  - NEPHROLITHIASIS [None]
  - PELVIC PAIN [None]
  - PAIN [None]
  - BACK PAIN [None]
  - POLLAKIURIA [None]
  - MALAISE [None]
  - OFF LABEL USE [None]
  - THERAPEUTIC RESPONSE UNEXPECTED [None]
  - MUSCLE SPASMS [None]
